FAERS Safety Report 4797207-0 (Version None)
Quarter: 2005Q4

REPORT INFORMATION
  Report Type: 
  Country: None (occurrence: None)
  Receive Date: 20051013
  Receipt Date: 20051007
  Transmission Date: 20060501
  Serious: Yes (Hospitalization)
  Sender: FDA-Public Use
  Company Number: FR-MERCK-0510FRA00021

PATIENT
  Age: 85 Year
  Sex: Female
  Weight: 60 kg

DRUGS (3)
  1. PRIMAXIN [Suspect]
     Indication: SKIN INFECTION
     Route: 042
     Dates: start: 20050806, end: 20050814
  2. VANCOMYCIN [Suspect]
     Indication: SKIN INFECTION
     Route: 042
     Dates: start: 20050811, end: 20050814
  3. AMIKACIN SULFATE [Suspect]
     Indication: SKIN INFECTION
     Route: 042
     Dates: start: 20050806, end: 20050814

REACTIONS (1)
  - SYSTEMIC LUPUS ERYTHEMATOSUS RASH [None]
